FAERS Safety Report 10221786 (Version 1)
Quarter: 2014Q2

REPORT INFORMATION
  Report Type: Spontaneous
  Country: RU (occurrence: RU)
  Receive Date: 20140606
  Receipt Date: 20140606
  Transmission Date: 20141212
  Serious: No
  Sender: FDA-Public Use
  Company Number: RU-BIOMARINAP-RU-2013-101498

PATIENT
  Sex: Male

DRUGS (2)
  1. NAGLAZYME [Suspect]
     Indication: MUCOPOLYSACCHARIDOSIS VI
     Dosage: UNK UNK, QW
     Dates: start: 20130101
  2. OXYGEN [Concomitant]
     Indication: MECHANICAL VENTILATION

REACTIONS (1)
  - Pneumonia [Unknown]
